FAERS Safety Report 6087488-8 (Version None)
Quarter: 2009Q1

REPORT INFORMATION
  Report Type: 
  Country: None (occurrence: None)
  Receive Date: 20090223
  Receipt Date: 20090211
  Transmission Date: 20090719
  Serious: Yes (Other)
  Sender: FDA-Public Use
  Company Number: FR-PFIZER INC-2009170270

PATIENT

DRUGS (4)
  1. GABAPENTIN [Suspect]
     Route: 048
     Dates: end: 20081201
  2. VALPROIC ACID [Suspect]
     Route: 048
     Dates: end: 20081001
  3. LEVETIRACETAM [Suspect]
     Route: 048
  4. CLONAZEPAM [Suspect]
     Dosage: 2,5 MG/ML
     Route: 048

REACTIONS (1)
  - RENAL DISORDER [None]
